FAERS Safety Report 23132048 (Version 1)
Quarter: 2023Q4

REPORT INFORMATION
  Report Type: Spontaneous
  Country: MX (occurrence: MX)
  Receive Date: 20231101
  Receipt Date: 20231101
  Transmission Date: 20240109
  Serious: Yes (Death)
  Sender: FDA-Public Use
  Company Number: MX-NOVITIUMPHARMA-2023MXNVP01863

PATIENT
  Age: 60 Year
  Sex: Male

DRUGS (9)
  1. SULFAMETHOXAZOLE\TRIMETHOPRIM [Suspect]
     Active Substance: SULFAMETHOXAZOLE\TRIMETHOPRIM
     Indication: Klebsiella infection
  2. LEVOFLOXACIN [Suspect]
     Active Substance: LEVOFLOXACIN
     Indication: Klebsiella infection
  3. ANIDULAFUNGIN [Concomitant]
     Active Substance: ANIDULAFUNGIN
     Indication: Candida infection
  4. AMPHOTERICIN B [Concomitant]
     Active Substance: AMPHOTERICIN B
     Indication: Candida infection
  5. CEFTAZIDIME [Concomitant]
     Active Substance: CEFTAZIDIME
     Indication: Klebsiella infection
  6. CEFTAROLINE [Concomitant]
     Active Substance: CEFTAROLINE
     Indication: Klebsiella infection
  7. LINEZOLID [Concomitant]
     Active Substance: LINEZOLID
     Indication: Klebsiella infection
  8. IMIPENEM [Concomitant]
     Active Substance: IMIPENEM
     Indication: Klebsiella infection
  9. MEROPENEM [Concomitant]
     Active Substance: MEROPENEM
     Indication: Klebsiella infection

REACTIONS (1)
  - Drug ineffective [Fatal]
